FAERS Safety Report 12818183 (Version 8)
Quarter: 2017Q1

REPORT INFORMATION
  Report Type: Spontaneous
  Country: US (occurrence: US)
  Receive Date: 20161005
  Receipt Date: 20170201
  Transmission Date: 20170428
  Serious: No
  Sender: FDA-Public Use
  Company Number: US-ACTELION-A-NJ2016-143036

PATIENT
  Age: 57 Year
  Sex: Female
  Weight: 46.98 kg

DRUGS (23)
  1. K TAB [Concomitant]
  2. CENTRUM SILVER [Concomitant]
     Active Substance: MINERALS\VITAMINS
  3. IMODIUM [Concomitant]
     Active Substance: LOPERAMIDE HYDROCHLORIDE
  4. AMBRISENTAN [Suspect]
     Active Substance: AMBRISENTAN
     Indication: PULMONARY HYPERTENSION
     Dosage: 10 MG, QD
     Route: 065
     Dates: start: 20160919
  5. MELATONIN [Concomitant]
     Active Substance: MELATONIN
  6. LASIX [Concomitant]
     Active Substance: FUROSEMIDE
  7. UPTRAVI [Suspect]
     Active Substance: SELEXIPAG
     Indication: PULMONARY HYPERTENSION
     Dosage: 1200 MCG, BID
     Route: 048
  8. UPTRAVI [Suspect]
     Active Substance: SELEXIPAG
     Dosage: 800 MCG, BID
     Route: 048
  9. VITAMIN B COMPLEX [Concomitant]
     Active Substance: CYANOCOBALAMIN\DEXPANTHENOL\NIACINAMIDE\PYRIDOXINE HYDROCHLORIDE\RIBOFLAVIN 5^-PHOSPHATE SODIUM\THIAMINE HYDROCHLORIDE\VITAMIN B COMPLEX
  10. FISH OIL [Concomitant]
     Active Substance: FISH OIL
  11. RESTASIS [Concomitant]
     Active Substance: CYCLOSPORINE
  12. REFRESH TEAR [Concomitant]
  13. CALCIUM CARBONATE. [Concomitant]
     Active Substance: CALCIUM CARBONATE
  14. UPTRAVI [Suspect]
     Active Substance: SELEXIPAG
     Dosage: 200 MCG, BID
     Route: 048
     Dates: start: 20160919
  15. TYLENOL [Concomitant]
     Active Substance: ACETAMINOPHEN
  16. CHONDROITIN GLUCOSAMIN [Concomitant]
     Active Substance: CHONDROITIN SULFATE A\GLUCOSAMINE
  17. VITAMIN C [Concomitant]
     Active Substance: ASCORBIC ACID
  18. EVOXAC [Concomitant]
     Active Substance: CEVIMELINE HYDROCHLORIDE
  19. UPTRAVI [Suspect]
     Active Substance: SELEXIPAG
     Dosage: 600 MCG, BID
     Route: 048
  20. SILDENAFIL. [Concomitant]
     Active Substance: SILDENAFIL
  21. PROTONIX [Concomitant]
     Active Substance: PANTOPRAZOLE SODIUM
  22. UPTRAVI [Suspect]
     Active Substance: SELEXIPAG
     Dosage: 1000 MCG, BID
     Route: 048
  23. VITAMIN E [Concomitant]
     Active Substance: .ALPHA.-TOCOPHEROL

REACTIONS (12)
  - Pain [Unknown]
  - Headache [Not Recovered/Not Resolved]
  - Joint swelling [Unknown]
  - Cough [Unknown]
  - Arthralgia [Recovered/Resolved]
  - Pain in extremity [Not Recovered/Not Resolved]
  - Back pain [Recovering/Resolving]
  - Tenderness [Unknown]
  - Flushing [Unknown]
  - Gait disturbance [Unknown]
  - Nasopharyngitis [Not Recovered/Not Resolved]
  - Diarrhoea [Not Recovered/Not Resolved]
